FAERS Safety Report 24638277 (Version 1)
Quarter: 2024Q4

REPORT INFORMATION
  Report Type: Spontaneous
  Country: US (occurrence: None)
  Receive Date: 20241119
  Receipt Date: 20241119
  Transmission Date: 20250114
  Serious: Yes (Hospitalization)
  Sender: Public
  Company Number: None

PATIENT
  Age: 76 Year
  Sex: Male
  Weight: 76 kg

DRUGS (2)
  1. APIXABAN [Suspect]
     Active Substance: APIXABAN
     Dosage: FREQUENCY : TWICE A DAY;?
     Route: 048
  2. DEVICE [Suspect]
     Active Substance: DEVICE

REACTIONS (3)
  - Penile haemorrhage [None]
  - Hypotension [None]
  - Haemoglobin decreased [None]

NARRATIVE: CASE EVENT DATE: 20240611
